FAERS Safety Report 18226789 (Version 1)
Quarter: 2020Q3

REPORT INFORMATION
  Report Type: Spontaneous
  Country: SE (occurrence: SE)
  Receive Date: 20200903
  Receipt Date: 20200903
  Transmission Date: 20201103
  Serious: Yes (Other)
  Sender: FDA-Public Use
  Company Number: NVSC2020SE238562

PATIENT
  Sex: Female

DRUGS (1)
  1. GABAPENTIN 1A PHARMA [Suspect]
     Active Substance: GABAPENTIN
     Indication: INTERVERTEBRAL DISC DISORDER
     Route: 065

REACTIONS (2)
  - Anaphylactic shock [Unknown]
  - Product use in unapproved indication [Unknown]
